FAERS Safety Report 6897527-X (Version None)
Quarter: 2010Q3

REPORT INFORMATION
  Report Type: 
  Country: None (occurrence: None)
  Receive Date: 20100802
  Receipt Date: 20070618
  Transmission Date: 20110219
  Serious: No
  Sender: FDA-Public Use
  Company Number: US-PFIZER INC-2007048984

PATIENT
  Sex: Female
  Weight: 96.4 kg

DRUGS (7)
  1. LYRICA [Suspect]
     Indication: PAIN IN EXTREMITY
     Dates: start: 20070605
  2. LUNESTA [Concomitant]
  3. VICODIN [Concomitant]
  4. LISINOPRIL [Concomitant]
  5. HYDROCHLOROTHIAZIDE [Concomitant]
  6. PREVACID [Concomitant]
  7. LIPITOR [Concomitant]

REACTIONS (2)
  - FATIGUE [None]
  - INCORRECT DOSE ADMINISTERED [None]
